FAERS Safety Report 4704436-0 (Version None)
Quarter: 2005Q2

REPORT INFORMATION
  Report Type: 
  Country: None (occurrence: None)
  Receive Date: 20050630
  Receipt Date: 20050630
  Transmission Date: 20051028
  Serious: Yes (Other)
  Sender: FDA-Public Use
  Company Number: None

PATIENT
  Age: 64 Year
  Sex: Female
  Weight: 104 kg

DRUGS (6)
  1. REMICADE [Suspect]
     Indication: RHEUMATOID ARTHRITIS
     Dosage: 200 MG IV X 1
     Route: 042
     Dates: start: 20050602
  2. COZAAR [Concomitant]
  3. ASPIRIN [Concomitant]
  4. LESCOL [Concomitant]
  5. REGULAR INSULIN [Concomitant]
  6. CALCIUM GLUCONATE [Concomitant]

REACTIONS (6)
  - BLOOD PRESSURE FLUCTUATION [None]
  - DIARRHOEA [None]
  - DRUG EFFECT DECREASED [None]
  - NAUSEA [None]
  - PHARYNGOLARYNGEAL PAIN [None]
  - VOMITING [None]
